FAERS Safety Report 23940871 (Version 1)
Quarter: 2024Q2

REPORT INFORMATION
  Report Type: Spontaneous
  Country: US (occurrence: None)
  Receive Date: 20240604
  Receipt Date: 20240604
  Transmission Date: 20240716
  Serious: No
  Sender: FDA-Public Use
  Company Number: None

PATIENT

DRUGS (1)
  1. DICLOFENAC SODIUM [Suspect]
     Active Substance: DICLOFENAC\DICLOFENAC SODIUM

REACTIONS (4)
  - Transcription medication error [None]
  - Drug dispensed to wrong patient [None]
  - Product administered by wrong person [None]
  - Therapy cessation [None]

NARRATIVE: CASE EVENT DATE: 20240101
